FAERS Safety Report 10170388 (Version 1)
Quarter: 2014Q2

REPORT INFORMATION
  Report Type: Spontaneous
  Country: US (occurrence: US)
  Receive Date: 20140513
  Receipt Date: 20140513
  Transmission Date: 20141212
  Serious: No
  Sender: FDA-Public Use
  Company Number: US-UPSHER-SMITH LABORATORIES, INC.-13002945

PATIENT
  Sex: Male

DRUGS (8)
  1. KLOR-CON TABLETS [Suspect]
     Indication: BLOOD POTASSIUM DECREASED
     Dosage: 60 MEQ, QD
     Route: 048
     Dates: start: 2003
  2. KLOR-CON TABLETS [Suspect]
     Dosage: 20 MEQ, QD
     Route: 048
  3. NORVASC                            /00972401/ [Concomitant]
     Dosage: UNK
  4. COREG [Concomitant]
     Dosage: UNK
  5. MULTIVITAMIN                       /01229101/ [Concomitant]
     Dosage: UNK
  6. FISH OIL [Concomitant]
     Dosage: UNK
  7. MAGNESIUM [Concomitant]
     Dosage: UNK
  8. VITAMIN D                          /00107901/ [Concomitant]
     Dosage: UNK

REACTIONS (3)
  - Rash erythematous [Not Recovered/Not Resolved]
  - Medication residue present [Recovered/Resolved]
  - Skin discolouration [Not Recovered/Not Resolved]
